FAERS Safety Report 13537679 (Version 1)
Quarter: 2017Q2

REPORT INFORMATION
  Report Type: Report from Study
  Country: US (occurrence: US)
  Receive Date: 20170511
  Receipt Date: 20170511
  Transmission Date: 20170830
  Serious: Yes (Hospitalization, Other)
  Sender: FDA-Public Use
  Company Number: US-ACTELION-A-NJ2017-153143

PATIENT
  Age: 83 Year
  Sex: Female

DRUGS (11)
  1. OMEPRAZOLE. [Concomitant]
     Active Substance: OMEPRAZOLE
  2. SILDENAFIL. [Concomitant]
     Active Substance: SILDENAFIL
  3. NORTRIPTYLINE [Concomitant]
     Active Substance: NORTRIPTYLINE
  4. FERROUS SULFATE. [Concomitant]
     Active Substance: FERROUS SULFATE
  5. BETHANECHOL [Concomitant]
     Active Substance: BETHANECHOL
  6. TRANDOL [Concomitant]
  7. ASA [Concomitant]
     Active Substance: ASPIRIN
  8. OPSUMIT [Suspect]
     Active Substance: MACITENTAN
     Indication: PULMONARY HYPERTENSION
     Dosage: 10 MG, UNK
     Route: 048
     Dates: start: 201704, end: 20170416
  9. MYCOPHENOLATE [Concomitant]
     Active Substance: MYCOPHENOLIC ACID
  10. SIMVASTATIN. [Concomitant]
     Active Substance: SIMVASTATIN
  11. CLOZAPINE. [Concomitant]
     Active Substance: CLOZAPINE

REACTIONS (9)
  - Gastrooesophageal reflux disease [Unknown]
  - Cardiac failure congestive [Unknown]
  - Pulmonary oedema [Unknown]
  - Fall [Recovered/Resolved]
  - Malaise [Not Recovered/Not Resolved]
  - Chest pain [Recovered/Resolved]
  - Chest discomfort [Recovering/Resolving]
  - Pulmonary hypertension [Unknown]
  - Pain [Not Recovered/Not Resolved]

NARRATIVE: CASE EVENT DATE: 2017
